FAERS Safety Report 8328410-0 (Version None)
Quarter: 2012Q2

REPORT INFORMATION
  Report Type: 
  Country: None (occurrence: None)
  Receive Date: 20120502
  Receipt Date: 20120424
  Transmission Date: 20120825
  Serious: Yes (Life-Threatening, Other)
  Sender: FDA-Public Use
  Company Number: PHEH2012US005094

PATIENT
  Sex: Female
  Weight: 86 kg

DRUGS (10)
  1. LISINOPRIL [Concomitant]
  2. METOPROLOL TARTRATE [Concomitant]
     Indication: HYPERTENSION
  3. METOPROLOL TARTRATE [Concomitant]
     Indication: ATRIAL FIBRILLATION
  4. ASPIRIN [Concomitant]
     Indication: HYPERTENSION
  5. TASIGNA [Suspect]
     Indication: CHRONIC MYELOID LEUKAEMIA
     Dosage: 400 MG, BID
     Route: 048
     Dates: start: 20111221, end: 20120330
  6. STEROIDS NOS [Concomitant]
  7. COLCHICINE [Concomitant]
  8. CARDIZEM CD [Concomitant]
     Indication: ATRIAL FIBRILLATION
  9. CARDIZEM CD [Concomitant]
     Indication: HYPERTENSION
  10. ASPIRIN [Concomitant]
     Indication: ATRIAL FIBRILLATION

REACTIONS (5)
  - VIRAL PERICARDITIS [None]
  - DRUG ADMINISTRATION ERROR [None]
  - CARDIAC TAMPONADE [None]
  - ABDOMINAL PAIN [None]
  - WRONG TECHNIQUE IN DRUG USAGE PROCESS [None]
